FAERS Safety Report 13635458 (Version 1)
Quarter: 2017Q2

REPORT INFORMATION
  Report Type: Spontaneous
  Country: US (occurrence: US)
  Receive Date: 20170531
  Receipt Date: 20170531
  Transmission Date: 20170830
  Serious: No
  Sender: FDA-Public Use
  Company Number: US-ASTELLAS-1716554

PATIENT
  Age: 93 Year
  Sex: Female

DRUGS (6)
  1. NORVASC [Concomitant]
     Active Substance: AMLODIPINE BESYLATE
  2. TRICOR [Concomitant]
     Active Substance: FENOFIBRATE
  3. ASPIRIN. [Concomitant]
     Active Substance: ASPIRIN
  4. ZOCOR [Concomitant]
     Active Substance: SIMVASTATIN
  5. TARCEVA [Suspect]
     Active Substance: ERLOTINIB HYDROCHLORIDE
     Indication: LUNG NEOPLASM MALIGNANT
     Route: 048
     Dates: start: 20160128
  6. TOPROL XL [Concomitant]
     Active Substance: METOPROLOL SUCCINATE

REACTIONS (2)
  - Skin irritation [Unknown]
  - Skin mass [Unknown]
